FAERS Safety Report 5255869-8 (Version None)
Quarter: 2007Q1

REPORT INFORMATION
  Report Type: 
  Country: None (occurrence: None)
  Receive Date: 20070301
  Receipt Date: 20070222
  Transmission Date: 20070707
  Serious: Yes (Death, Other)
  Sender: FDA-Public Use
  Company Number: 2006PV026461

PATIENT
  Age: 60 Year
  Sex: Female
  Weight: 63.9572 kg

DRUGS (9)
  1. BYETTA [Suspect]
     Indication: DIABETES MELLITUS NON-INSULIN-DEPENDENT
     Dosage: SEE IMAGE
     Route: 058
     Dates: start: 20051209, end: 20060105
  2. BYETTA [Suspect]
     Indication: DIABETES MELLITUS NON-INSULIN-DEPENDENT
     Dosage: SEE IMAGE
     Route: 058
     Dates: start: 20060106
  3. ATENOLOL [Concomitant]
  4. HYDROCHLOROTHIAZIDE [Concomitant]
  5. AMARYL [Concomitant]
  6. ASPIRIN [Concomitant]
  7. ACTOS [Concomitant]
  8. FOSINOPRIL SODIUM [Concomitant]
  9. METFORMIN HCL [Concomitant]

REACTIONS (4)
  - BILE DUCT CANCER [None]
  - BLOOD GLUCOSE INCREASED [None]
  - GALLBLADDER CANCER [None]
  - WEIGHT DECREASED [None]
